FAERS Safety Report 24036032 (Version 2)
Quarter: 2024Q3

REPORT INFORMATION
  Report Type: Report from Study
  Country: GB (occurrence: GB)
  Receive Date: 20240701
  Receipt Date: 20240729
  Transmission Date: 20241017
  Serious: Yes (Other)
  Sender: GLAXOSMITHKLINE
  Company Number: GB-GLAXOSMITHKLINE-GB2024EME080062

PATIENT

DRUGS (1)
  1. MEPOLIZUMAB [Suspect]
     Active Substance: MEPOLIZUMAB
     Indication: Asthma
     Dosage: 100 MG
     Dates: start: 202404

REACTIONS (7)
  - Nephrolithiasis [Unknown]
  - Contusion [Unknown]
  - Dermatitis [Unknown]
  - Blood urine present [Unknown]
  - Headache [Unknown]
  - Abdominal discomfort [Unknown]
  - Tonsillitis [Unknown]

NARRATIVE: CASE EVENT DATE: 20240701
